FAERS Safety Report 5154315-2 (Version None)
Quarter: 2006Q4

REPORT INFORMATION
  Report Type: 
  Country: None (occurrence: None)
  Receive Date: 20061114
  Receipt Date: 20061103
  Transmission Date: 20070319
  Serious: Yes (Other)
  Sender: FDA-Public Use
  Company Number: GXKR2006CH07083

PATIENT
  Age: 27 Year
  Sex: Male

DRUGS (2)
  1. METHADONE (NGX) (METHADONE) UNKNOWN [Suspect]
     Dosage: 60 MG, QD; 27.5 MG; 12.5 MG; 25 MG
  2. MIRTAZAPINE [Suspect]

REACTIONS (6)
  - ANXIETY [None]
  - CONDITION AGGRAVATED [None]
  - DRUG INTERACTION [None]
  - EMOTIONAL DISTRESS [None]
  - OBSESSIVE-COMPULSIVE DISORDER [None]
  - TENSION [None]
